FAERS Safety Report 6129620-3 (Version None)
Quarter: 2009Q1

REPORT INFORMATION
  Report Type: 
  Country: None (occurrence: None)
  Receive Date: 20090323
  Receipt Date: 20090323
  Transmission Date: 20090719
  Serious: Yes (Other)
  Sender: FDA-Public Use
  Company Number: None

PATIENT
  Age: 28 Year
  Sex: Female
  Weight: 50.8029 kg

DRUGS (1)
  1. TRIAMCINOLONE ACETONIDE [Suspect]
     Indication: BUTTERFLY RASH
     Dosage: 40MG ONCE IM
     Route: 030
     Dates: start: 20081122, end: 20081122

REACTIONS (3)
  - INJECTION SITE DISCOLOURATION [None]
  - INJECTION SITE IRRITATION [None]
  - INJECTION SITE REACTION [None]
